FAERS Safety Report 9298470 (Version 1)
Quarter: 2013Q2

REPORT INFORMATION
  Report Type: Spontaneous
  Country: NZ (occurrence: NZ)
  Receive Date: 20130520
  Receipt Date: 20130520
  Transmission Date: 20140414
  Serious: Yes (Death, Hospitalization)
  Sender: FDA-Public Use
  Company Number: NZ-B.I. PHARMACEUTICALS,INC./RIDGEFIELD-2013-AU-00316AU

PATIENT
  Age: 64 Year
  Sex: Female

DRUGS (1)
  1. PRADAXA [Suspect]
     Indication: ATRIAL FIBRILLATION
     Dosage: 300 MG
     Dates: end: 20130317

REACTIONS (6)
  - Gastrointestinal haemorrhage [Fatal]
  - Apnoea [Fatal]
  - Organ failure [Unknown]
  - Melaena [Unknown]
  - Renal impairment [Unknown]
  - Blood pressure decreased [Unknown]
